FAERS Safety Report 10344017 (Version 2)
Quarter: 2014Q3

REPORT INFORMATION
  Report Type: Spontaneous
  Country: FR (occurrence: FR)
  Receive Date: 20140728
  Receipt Date: 20140728
  Transmission Date: 20150326
  Serious: Yes (Hospitalization)
  Sender: FDA-Public Use
  Company Number: FR-ROCHE-1438713

PATIENT
  Age: 49 Year
  Sex: Female
  Weight: 81 kg

DRUGS (4)
  1. CLARELUX [Concomitant]
     Dosage: ONE PER DAY
     Route: 003
     Dates: start: 20130924, end: 20131024
  2. ZELBORAF [Suspect]
     Active Substance: VEMURAFENIB
     Indication: MALIGNANT MELANOMA
     Dosage: FOR THE MORNING AND FOR THE EVENING
     Route: 048
     Dates: start: 20130801, end: 20131028
  3. LOPERAMIDE [Concomitant]
     Active Substance: LOPERAMIDE
     Indication: DIARRHOEA
     Dosage: 1 TO 3 PER DAY
     Route: 048
     Dates: start: 20130924
  4. XARELTO [Concomitant]
     Active Substance: RIVAROXABAN
     Route: 065
     Dates: start: 20130924, end: 20131028

REACTIONS (2)
  - Pyrexia [Recovered/Resolved]
  - Asthma [Recovered/Resolved]
